FAERS Safety Report 5529218-1 (Version None)
Quarter: 2007Q4

REPORT INFORMATION
  Report Type: 
  Country: None (occurrence: None)
  Receive Date: 20071129
  Receipt Date: 20070702
  Transmission Date: 20080405
  Serious: No
  Sender: FDA-Public Use
  Company Number: A0661292A

PATIENT
  Age: 53 Year
  Sex: Female

DRUGS (11)
  1. BUPROPION HCL [Suspect]
     Dosage: 100MG PER DAY
     Route: 048
  2. TYKERB [Suspect]
     Indication: BREAST CANCER
     Dosage: 250MG FIVE TIMES PER DAY
     Route: 048
     Dates: start: 20070430
  3. XELODA [Suspect]
     Indication: BREAST CANCER
     Route: 065
     Dates: start: 20070401
  4. BECONASE AQ [Concomitant]
  5. WARFARIN SODIUM [Concomitant]
  6. ASPIRIN [Concomitant]
  7. VALIUM [Concomitant]
  8. RANITIDINE HCL [Concomitant]
  9. BUPROPION HCL [Concomitant]
  10. VERAPAMIL [Concomitant]
  11. ZOCOR [Concomitant]

REACTIONS (4)
  - DRUG INEFFECTIVE [None]
  - EPISTAXIS [None]
  - HAEMOPTYSIS [None]
  - NASAL DISCOMFORT [None]
